FAERS Safety Report 6420086-2 (Version None)
Quarter: 2009Q4

REPORT INFORMATION
  Report Type: 
  Country: None (occurrence: None)
  Receive Date: 20091029
  Receipt Date: 20091019
  Transmission Date: 20100525
  Serious: Yes (Hospitalization)
  Sender: FDA-Public Use
  Company Number: US-PFIZER INC-2009285115

PATIENT
  Sex: Female

DRUGS (17)
  1. ZOLOFT [Suspect]
     Indication: DEPRESSION
     Dosage: UNK
     Route: 048
     Dates: end: 20090625
  2. ZOLOFT [Suspect]
     Dosage: 50 MG, 1X/DAY
     Route: 048
     Dates: start: 20090626, end: 20090812
  3. MILNACIPRAN HYDROCHLORIDE [Suspect]
     Indication: FIBROMYALGIA
     Dosage: 12.5 MG, 1X/DAY
     Route: 048
     Dates: start: 20090612, end: 20090612
  4. MILNACIPRAN HYDROCHLORIDE [Suspect]
     Dosage: 12.5 MG, 2X/DAY
     Route: 048
     Dates: start: 20090613, end: 20090614
  5. MILNACIPRAN HYDROCHLORIDE [Suspect]
     Dosage: 25 MG, 2X/DAY
     Route: 048
     Dates: start: 20090615, end: 20090618
  6. MILNACIPRAN HYDROCHLORIDE [Suspect]
     Dosage: 50 MG, 2X/DAY
     Route: 048
     Dates: start: 20090619, end: 20090625
  7. MILNACIPRAN HYDROCHLORIDE [Suspect]
     Dosage: 150 MG, 1X/DAY
     Route: 048
     Dates: start: 20090626, end: 20090702
  8. MILNACIPRAN HYDROCHLORIDE [Suspect]
     Dosage: 100 MG, 2X/DAY
     Route: 048
     Dates: start: 20090703, end: 20090812
  9. MOBIC [Concomitant]
     Dosage: UNK
  10. LIDODERM [Concomitant]
     Indication: FIBROMYALGIA
     Dosage: UNK
     Route: 062
  11. AMBIEN [Concomitant]
     Dosage: UNK
  12. EVISTA [Concomitant]
     Dosage: UNK
  13. PROTONIX [Concomitant]
     Dosage: UNK
  14. PRAVACHOL [Concomitant]
     Dosage: UNK
  15. VITAMIN D [Concomitant]
     Dosage: UNK
  16. FISH OIL [Concomitant]
     Dosage: UNK
  17. CALCIUM [Concomitant]
     Dosage: UNK

REACTIONS (2)
  - DRUG INTERACTION [None]
  - MENTAL STATUS CHANGES [None]
